FAERS Safety Report 23850177 (Version 1)
Quarter: 2024Q2

REPORT INFORMATION
  Report Type: Spontaneous
  Country: FR (occurrence: FR)
  Receive Date: 20240513
  Receipt Date: 20240513
  Transmission Date: 20240716
  Serious: Yes (Other)
  Sender: FDA-Public Use
  Company Number: None

PATIENT
  Age: 22 Year
  Sex: Female

DRUGS (2)
  1. OMEPRAZOLE [Suspect]
     Active Substance: DONEPEZIL HYDROCHLORIDE\OMEPRAZOLE\OMEPRAZOLE MAGNESIUM
     Indication: Gastrooesophageal reflux disease
     Dosage: UNK
     Route: 048
  2. KEPPRA [Concomitant]
     Active Substance: LEVETIRACETAM
     Dosage: UNK
     Route: 048

REACTIONS (1)
  - Liver disorder [Recovered/Resolved]
